FAERS Safety Report 17212388 (Version 1)
Quarter: 2019Q4

REPORT INFORMATION
  Report Type: Spontaneous
  Country: CN (occurrence: CN)
  Receive Date: 20191230
  Receipt Date: 20191230
  Transmission Date: 20200122
  Serious: Yes (Other)
  Sender: FDA-Public Use
  Company Number: CN-BRISTOL-MYERS SQUIBB COMPANY-BMS-2019-121216

PATIENT
  Age: 62 Year
  Sex: Female

DRUGS (1)
  1. TRIAMCINOLONE ACETONIDE. [Suspect]
     Active Substance: TRIAMCINOLONE ACETONIDE
     Indication: MACULAR OEDEMA
     Dosage: 0.1 MILLILITER

REACTIONS (6)
  - Posterior capsule opacification [Recovering/Resolving]
  - Vision blurred [Recovering/Resolving]
  - Intraocular pressure increased [Recovered/Resolved]
  - Lens disorder [Unknown]
  - Intentional product use issue [Unknown]
  - Posterior capsule rupture [Unknown]
